FAERS Safety Report 10816547 (Version 3)
Quarter: 2015Q3

REPORT INFORMATION
  Report Type: Spontaneous
  Country: US (occurrence: US)
  Receive Date: 20150218
  Receipt Date: 20150812
  Transmission Date: 20151125
  Serious: Yes (Other)
  Sender: FDA-Public Use
  Company Number: US-ALLERGAN-1502414US

PATIENT
  Age: 70 Year
  Sex: Female

DRUGS (3)
  1. BOTOX [Suspect]
     Active Substance: ONABOTULINUMTOXINA
     Dosage: UNK, SINGLE
     Dates: start: 2013, end: 2013
  2. BOTOX [Suspect]
     Active Substance: ONABOTULINUMTOXINA
     Indication: HYPERTONIC BLADDER
     Dosage: UNK, SINGLE
     Dates: start: 2013, end: 2013
  3. BOTOX [Suspect]
     Active Substance: ONABOTULINUMTOXINA
     Indication: BLADDER SPASM
     Dosage: UNK UNK, SINGLE
     Dates: start: 201412, end: 201412

REACTIONS (14)
  - Bladder operation [Unknown]
  - Pain [Unknown]
  - Surgery [Unknown]
  - Weight increased [Not Recovered/Not Resolved]
  - Dysphagia [Recovered/Resolved]
  - Dysuria [Not Recovered/Not Resolved]
  - Bacterial infection [Not Recovered/Not Resolved]
  - Urinary retention [Recovered/Resolved]
  - Escherichia urinary tract infection [Unknown]
  - Intervertebral disc protrusion [Unknown]
  - Head injury [Unknown]
  - Pyrexia [Not Recovered/Not Resolved]
  - Overdose [Unknown]
  - Cystitis interstitial [Unknown]

NARRATIVE: CASE EVENT DATE: 2013
